FAERS Safety Report 6683615-X (Version None)
Quarter: 2010Q2

REPORT INFORMATION
  Report Type: 
  Country: None (occurrence: None)
  Receive Date: 20100412
  Receipt Date: 20090729
  Transmission Date: 20101027
  Serious: No
  Sender: FDA-Public Use
  Company Number: 2009-00431

PATIENT
  Age: 65 Year
  Sex: Female
  Weight: 63.5036 kg

DRUGS (2)
  1. ZICAM COLD REMEDY NASAL GEL [Suspect]
     Dosage: Q4 HRS - 1 1/2 DAYS : 6 WKS AGO - 1 1/2 DAYS
  2. HORMONE REPLACEMENT THERAPY [Concomitant]

REACTIONS (2)
  - AGEUSIA [None]
  - ANOSMIA [None]
